FAERS Safety Report 4472474-1 (Version None)
Quarter: 2004Q4

REPORT INFORMATION
  Report Type: 
  Country: None (occurrence: None)
  Receive Date: 20041007
  Receipt Date: 20040923
  Transmission Date: 20050328
  Serious: Yes (Hospitalization)
  Sender: FDA-Public Use
  Company Number: 2004-BP-08667BP

PATIENT
  Age: 69 Year
  Sex: Male

DRUGS (3)
  1. SPIRIVA [Suspect]
     Indication: CHRONIC OBSTRUCTIVE AIRWAYS DISEASE
     Dosage: 18 MCG (18 MCG), IH
     Route: 055
     Dates: start: 20040903
  2. ATROVENT [Suspect]
     Indication: CHRONIC OBSTRUCTIVE AIRWAYS DISEASE
     Dosage: (SEE TEXT), IH
     Route: 055
  3. ALBUTEROL [Concomitant]

REACTIONS (5)
  - ANAESTHETIC COMPLICATION [None]
  - CHEST PAIN [None]
  - EMPHYSEMA [None]
  - PAIN IN EXTREMITY [None]
  - THERAPY NON-RESPONDER [None]
